FAERS Safety Report 10675954 (Version 1)
Quarter: 2014Q4

REPORT INFORMATION
  Report Type: Spontaneous
  Country: IT (occurrence: IT)
  Receive Date: 20141225
  Receipt Date: 20141225
  Transmission Date: 20150529
  Serious: Yes (Other)
  Sender: FDA-Public Use
  Company Number: IT-BRISTOL-MYERS SQUIBB COMPANY-BMS-2014-001630

PATIENT
  Age: 79 Year
  Sex: Female

DRUGS (2)
  1. PROPAFENONE. [Concomitant]
     Active Substance: PROPAFENONE
  2. APIXABAN [Suspect]
     Active Substance: APIXABAN
     Indication: CEREBROVASCULAR ACCIDENT PROPHYLAXIS
     Dosage: 5 MG, BID
     Route: 048

REACTIONS (4)
  - Osteoarthritis [Unknown]
  - Spinal osteoarthritis [Unknown]
  - Musculoskeletal disorder [Unknown]
  - Rotator cuff syndrome [Unknown]

NARRATIVE: CASE EVENT DATE: 201411
